FAERS Safety Report 10021864 (Version 1)
Quarter: 2014Q1

REPORT INFORMATION
  Report Type: Spontaneous
  Country: FR (occurrence: FR)
  Receive Date: 20140319
  Receipt Date: 20140319
  Transmission Date: 20141002
  Serious: Yes (Other)
  Sender: FDA-Public Use
  Company Number: FR-BRISTOL-MYERS SQUIBB COMPANY-20493995

PATIENT
  Age: 48 Year
  Sex: Male

DRUGS (4)
  1. ERBITUX SOLN FOR INF [Suspect]
     Dosage: 1 DF=1 UNIT NOS
     Route: 042
     Dates: start: 20131126
  2. FLUOROURACIL [Suspect]
     Route: 042
     Dates: start: 20131126
  3. OXALIPLATIN [Suspect]
     Dosage: 1 DF= 1 UNIT NOS
     Route: 042
     Dates: start: 20131126
  4. FOLINIC ACID [Suspect]
     Dosage: 1 DF= 1UNIT NOS
     Route: 042
     Dates: start: 20131126

REACTIONS (1)
  - Urinary retention [Recovered/Resolved]
